FAERS Safety Report 15440538 (Version 3)
Quarter: 2018Q4

REPORT INFORMATION
  Report Type: Report from Study
  Country: BE (occurrence: BE)
  Receive Date: 20180928
  Receipt Date: 20181203
  Transmission Date: 20190204
  Serious: Yes (Death)
  Sender: FDA-Public Use
  Company Number: BE-BEH-2018095141

PATIENT
  Age: 6 Year
  Sex: Female

DRUGS (1)
  1. HIZENTRA [Suspect]
     Active Substance: HUMAN IMMUNOGLOBULIN G
     Indication: PRODUCT USED FOR UNKNOWN INDICATION
     Dosage: 6.5 ML, QW
     Route: 058
     Dates: start: 20160928

REACTIONS (1)
  - Liver transplant [Fatal]

NARRATIVE: CASE EVENT DATE: 20180905
